FAERS Safety Report 14814110 (Version 1)
Quarter: 2018Q2

REPORT INFORMATION
  Report Type: Spontaneous
  Country: US (occurrence: US)
  Receive Date: 20180402
  Receipt Date: 20180402
  Transmission Date: 20180711
  Serious: Yes (Hospitalization)
  Sender: FDA-Public Use
  Company Number: None

PATIENT
  Age: 87 Year
  Sex: Male

DRUGS (4)
  1. LUPRON [Suspect]
     Active Substance: LEUPROLIDE ACETATE
     Indication: ENDOMETRIOSIS
     Dosage: 22.5 MG Q 3 MONTHS INTRAMUSCULAR?
     Route: 030
     Dates: start: 20101109
  2. WATER TAB [Concomitant]
  3. COUMADIN [Concomitant]
     Active Substance: WARFARIN SODIUM
  4. CENTRUM [Concomitant]
     Active Substance: VITAMINS

REACTIONS (1)
  - Infection [None]

NARRATIVE: CASE EVENT DATE: 20180330
